FAERS Safety Report 4700543-7 (Version None)
Quarter: 2005Q2

REPORT INFORMATION
  Report Type: 
  Country: None (occurrence: None)
  Receive Date: 20050627
  Receipt Date: 20050627
  Transmission Date: 20051028
  Serious: Yes (Life-Threatening)
  Sender: FDA-Public Use
  Company Number: None

PATIENT
  Age: 69 Year
  Sex: Male
  Weight: 65 kg

DRUGS (2)
  1. WARFARIN     1MG [Suspect]
     Indication: ATRIAL FIBRILLATION
     Dosage: 2MG   QD- M,F-   ORAL ;  1MG  QD-T,R,S,SU-  ORAL
     Route: 048
     Dates: start: 20040603, end: 20050317
  2. WARFARIN     1MG [Suspect]
     Indication: CARDIAC FAILURE CONGESTIVE
     Dosage: 2MG   QD- M,F-   ORAL ;  1MG  QD-T,R,S,SU-  ORAL
     Route: 048
     Dates: start: 20040603, end: 20050317

REACTIONS (3)
  - FAECES DISCOLOURED [None]
  - FATIGUE [None]
  - MELAENA [None]
